FAERS Safety Report 12839846 (Version 1)
Quarter: 2016Q4

REPORT INFORMATION
  Report Type: Spontaneous
  Country: US (occurrence: US)
  Receive Date: 20161012
  Receipt Date: 20161012
  Transmission Date: 20170207
  Serious: No
  Sender: FDA-Public Use
  Company Number: US-009507513-1609USA006641

PATIENT
  Age: 25 Year
  Sex: Female
  Weight: 102.95 kg

DRUGS (3)
  1. OMEPRAZOLE. [Concomitant]
     Active Substance: OMEPRAZOLE
  2. RANITIDINE. [Concomitant]
     Active Substance: RANITIDINE
     Dosage: UNK
  3. NEXPLANON [Suspect]
     Active Substance: ETONOGESTREL
     Dosage: 1 DF FOR 3 YEARS
     Route: 059
     Dates: start: 20160816, end: 20160817

REACTIONS (1)
  - Ecchymosis [Unknown]

NARRATIVE: CASE EVENT DATE: 20160817
